FAERS Safety Report 4837237-3 (Version None)
Quarter: 2005Q4

REPORT INFORMATION
  Report Type: 
  Country: None (occurrence: None)
  Receive Date: 20051114
  Receipt Date: 20051109
  Transmission Date: 20060501
  Serious: Yes (Hospitalization)
  Sender: FDA-Public Use
  Company Number: 20052645

PATIENT
  Sex: Male

DRUGS (1)
  1. LIORESAL [Suspect]
     Indication: MUSCLE SPASTICITY
     Dosage: DAILY INTRATHECAL
     Route: 037

REACTIONS (3)
  - CATHETER RELATED COMPLICATION [None]
  - DEVICE FAILURE [None]
  - FOREIGN BODY TRAUMA [None]
